FAERS Safety Report 14432383 (Version 3)
Quarter: 2018Q1

REPORT INFORMATION
  Report Type: Spontaneous
  Country: BG (occurrence: BG)
  Receive Date: 20180124
  Receipt Date: 20180223
  Transmission Date: 20180509
  Serious: Yes (Hospitalization)
  Sender: FDA-Public Use
  Company Number: PHHY2017BG199639

PATIENT
  Age: 59 Year
  Sex: Male

DRUGS (14)
  1. HYDROXYZINE HYDROCHLORIDE. [Concomitant]
     Active Substance: HYDROXYZINE HYDROCHLORIDE
     Indication: INSOMNIA
     Dosage: 25 MG, UNK
     Route: 048
     Dates: start: 20171017
  2. ATEZOLIZUMAB. [Suspect]
     Active Substance: ATEZOLIZUMAB
     Indication: SMALL CELL LUNG CANCER
     Dosage: 1200 MG, CYCLIC (DAY 01 CYCLE 01 ON DAY 1 OF EACH 21-DAY CYCLEINFUSION STARTED AT 14:15 AND ENDED AT
     Route: 042
     Dates: start: 20171024
  3. ONDANSETRON [Concomitant]
     Active Substance: ONDANSETRON
     Indication: PROPHYLAXIS
     Dosage: 8 MG, QD
     Route: 042
     Dates: start: 20171114, end: 20171116
  4. ONDANSETRON [Concomitant]
     Active Substance: ONDANSETRON
     Dosage: 8 MG, QD
     Route: 042
     Dates: start: 20171205, end: 20171207
  5. FLUOCINOLONE ACETONIDE. [Concomitant]
     Active Substance: FLUOCINOLONE ACETONIDE
     Indication: PHLEBITIS
     Dosage: 0.05 MG, QD
     Route: 061
     Dates: start: 20171119, end: 20171128
  6. NADROPARIN CALCIUM [Concomitant]
     Active Substance: NADROPARIN CALCIUM
     Indication: PROPHYLAXIS
     Dosage: 1.2 ML, QD
     Route: 058
     Dates: start: 20171212
  7. NIMESULIDE [Concomitant]
     Active Substance: NIMESULIDE
     Indication: PHLEBITIS
     Dosage: 200 MG, QD
     Route: 048
     Dates: start: 20171119, end: 20171128
  8. ETOPOSIDE. [Suspect]
     Active Substance: ETOPOSIDE
     Indication: SMALL CELL LUNG CANCER
     Dosage: 200 MG/M2, CYCLIC
     Route: 042
     Dates: start: 20171024
  9. CARBOPLATIN. [Suspect]
     Active Substance: CARBOPLATIN
     Dosage: 705 MG, UNK (DAY 01 CYCLE 01 ON DAY 1 OF EACH 21-DAY CYCLESTART TIME OF INFUSION: 11:105 END: 12:10)
     Route: 042
     Dates: start: 20171207
  10. ATEZOLIZUMAB. [Suspect]
     Active Substance: ATEZOLIZUMAB
     Dosage: 1200 MG, CYCLIC (DAY 01 CYCLE 01 ON DAY 1 OF EACH 21-DAY CYCLEINFUSION STARTED AT 14:15 AND ENDED AT
     Route: 042
     Dates: start: 20171207
  11. CARBOPLATIN. [Suspect]
     Active Substance: CARBOPLATIN
     Indication: SMALL CELL LUNG CANCER
     Dosage: 705 MG, UNK (DAY 01 CYCLE 01 ON DAY 1 OF EACH 21-DAY CYCLESTART TIME OF INFUSION: 11:105 END: 12:10)
     Route: 042
     Dates: start: 20171024
  12. NADROPARIN CALCIUM [Concomitant]
     Active Substance: NADROPARIN CALCIUM
     Indication: DEEP VEIN THROMBOSIS
     Dosage: 0.8 ML, QD
     Route: 058
     Dates: start: 20171205, end: 20171207
  13. CHLOPHADON [Concomitant]
     Indication: HYPERTENSION
     Dosage: 0.15 MG, QD
     Route: 048
     Dates: start: 201608
  14. ETOPOSIDE. [Suspect]
     Active Substance: ETOPOSIDE
     Dosage: 200 MG/M2, CYCLIC
     Route: 042
     Dates: start: 20171207

REACTIONS (1)
  - Deep vein thrombosis [Recovered/Resolved]

NARRATIVE: CASE EVENT DATE: 20171207
